FAERS Safety Report 12964999 (Version 1)
Quarter: 2016Q4

REPORT INFORMATION
  Report Type: Spontaneous
  Country: US (occurrence: US)
  Receive Date: 20161122
  Receipt Date: 20161122
  Transmission Date: 20170207
  Serious: No
  Sender: FDA-Public Use
  Company Number: US-ALLERGAN-1665506US

PATIENT
  Sex: Female
  Weight: 51.7 kg

DRUGS (1)
  1. KYBELLA [Suspect]
     Active Substance: DEOXYCHOLIC ACID
     Indication: FAT TISSUE INCREASED
     Dosage: 0.2 ML, UNK
     Route: 058
     Dates: start: 20160802, end: 20160802

REACTIONS (1)
  - Contusion [Recovered/Resolved]
